FAERS Safety Report 6878408-4 (Version None)
Quarter: 2010Q3

REPORT INFORMATION
  Report Type: 
  Country: None (occurrence: None)
  Receive Date: 20100728
  Receipt Date: 20100716
  Transmission Date: 20110219
  Serious: Yes (Hospitalization)
  Sender: FDA-Public Use
  Company Number: US-WYE-H16286210

PATIENT
  Sex: Female
  Weight: 44.04 kg

DRUGS (3)
  1. EFFEXOR XR [Suspect]
     Indication: PAIN
     Dosage: UNKNOWN
  2. FENTANYL [Concomitant]
     Indication: PAIN
     Dosage: UNKNOWN
  3. NEURONTIN [Suspect]
     Indication: NEURALGIA
     Dosage: UNKNOWN

REACTIONS (3)
  - BLOOD SODIUM ABNORMAL [None]
  - DEVICE DISLOCATION [None]
  - NONSPECIFIC REACTION [None]
